FAERS Safety Report 14385966 (Version 5)
Quarter: 2019Q1

REPORT INFORMATION
  Report Type: Report from Study
  Country: None (occurrence: AU)
  Receive Date: 20180115
  Receipt Date: 20190319
  Transmission Date: 20190417
  Serious: Yes (Death, Life-Threatening, Hospitalization)
  Sender: FDA-Public Use
  Company Number: AU-ABBVIE-18P-008-2215182-00

PATIENT
  Age: 56 Year
  Sex: Female
  Weight: 73.4 kg

DRUGS (22)
  1. BORTEZOMIB. [Suspect]
     Active Substance: BORTEZOMIB
     Indication: PLASMA CELL MYELOMA
     Dosage: CYCLES 1  8: DAYS 1, 4, 8 AND 11 OF 21 DAYS CYCLE.
     Route: 058
     Dates: start: 20161108, end: 20170414
  2. DEXAMETHASONE. [Suspect]
     Active Substance: DEXAMETHASONE
     Dosage: CYCLE 9 AND BEYOND: ON DAYS 1, 2, 8, 9, 15, 16, 22 AND 23 OF 35 DAYS CYCLE.
     Route: 048
     Dates: start: 20170426, end: 20180104
  3. METOPROLOL. [Concomitant]
     Active Substance: METOPROLOL
     Indication: MYOCARDIAL ISCHAEMIA
     Dosage: AT MORNING
     Route: 048
     Dates: start: 2009, end: 20170721
  4. METOCLOPRAMIDE. [Concomitant]
     Active Substance: METOCLOPRAMIDE
     Indication: PROPHYLAXIS OF NAUSEA AND VOMITING
     Route: 048
     Dates: start: 20161108
  5. DEXAMETHASONE. [Suspect]
     Active Substance: DEXAMETHASONE
     Indication: PLASMA CELL MYELOMA
     Dosage: CYCLES 1  8: ON DAYS 1, 2, 4, 5, 8, 9, 11 AND 12 OF 21 DAYS CYCLE.
     Route: 048
     Dates: start: 20161108, end: 20170415
  6. METOPROLOL. [Concomitant]
     Active Substance: METOPROLOL
     Route: 048
     Dates: start: 20170722, end: 20170726
  7. NOVOMIX [Concomitant]
     Active Substance: INSULIN ASPART
     Indication: TYPE 2 DIABETES MELLITUS
     Dosage: MORNING AND NIGHT
     Route: 058
     Dates: start: 2009, end: 20170224
  8. NOVOMIX [Concomitant]
     Active Substance: INSULIN ASPART
     Dosage: MORNING AND NIGHT
     Route: 058
     Dates: start: 20170225
  9. BORTEZOMIB. [Suspect]
     Active Substance: BORTEZOMIB
     Dosage: CYCLE 9 AND BEYOND: DAYS 1, 8, 15 AND 22 OF 35 DAYS CYCLE
     Route: 058
     Dates: start: 20170426, end: 20180104
  10. FOLATE [Concomitant]
     Active Substance: FOLATE SODIUM
     Indication: HAEMOLYSIS
     Route: 048
     Dates: start: 20170824
  11. ATORVASTIN [Concomitant]
     Active Substance: ATORVASTATIN
     Indication: HYPERCHOLESTEROLAEMIA
     Dosage: FREQUENCY: NOCTE
     Route: 048
     Dates: start: 2009
  12. ASPIRIN. [Concomitant]
     Active Substance: ASPIRIN
     Indication: MYOCARDIAL ISCHAEMIA
     Route: 048
     Dates: start: 2010, end: 20180111
  13. AMIODARONE [Concomitant]
     Active Substance: AMIODARONE
     Indication: VENTRICULAR TACHYCARDIA
     Route: 048
     Dates: start: 20170728, end: 20170730
  14. GLYCERYL TRINITRATE [Concomitant]
     Active Substance: NITROGLYCERIN
     Indication: ISCHAEMIC HEART DISEASE PROPHYLAXIS
     Route: 060
     Dates: start: 20170729
  15. VENETOCLAX. [Suspect]
     Active Substance: VENETOCLAX
     Indication: PLASMA CELL MYELOMA
     Route: 048
     Dates: start: 20161108, end: 20180104
  16. METOPROLOL. [Concomitant]
     Active Substance: METOPROLOL
     Route: 048
     Dates: start: 20170726
  17. VALACICLOVIR HYDROCHLORIDE [Concomitant]
     Active Substance: VALACYCLOVIR HYDROCHLORIDE
     Indication: ANTIVIRAL PROPHYLAXIS
     Route: 048
     Dates: start: 20161108, end: 20180111
  18. AMIODARONE [Concomitant]
     Active Substance: AMIODARONE
     Route: 048
     Dates: start: 20170807
  19. TICAGRELOR. [Concomitant]
     Active Substance: TICAGRELOR
     Indication: MYOCARDIAL INFARCTION
     Route: 048
     Dates: start: 20170722
  20. METFORMIN [Concomitant]
     Active Substance: METFORMIN HYDROCHLORIDE
     Indication: TYPE 2 DIABETES MELLITUS
     Route: 048
     Dates: start: 2009
  21. AMIODARONE [Concomitant]
     Active Substance: AMIODARONE
     Route: 048
     Dates: start: 20170731, end: 20170806
  22. ATOVAQUONE. [Concomitant]
     Active Substance: ATOVAQUONE
     Indication: ANTIBIOTIC PROPHYLAXIS
     Route: 048
     Dates: start: 20170830, end: 20180111

REACTIONS (4)
  - Septic shock [Recovered/Resolved]
  - Multiple organ dysfunction syndrome [Fatal]
  - Pneumonia [Unknown]
  - Septic shock [Fatal]

NARRATIVE: CASE EVENT DATE: 20180107
